FAERS Safety Report 6717832-7 (Version None)
Quarter: 2010Q2

REPORT INFORMATION
  Report Type: 
  Country: None (occurrence: None)
  Receive Date: 20100510
  Receipt Date: 20100409
  Transmission Date: 20101027
  Serious: No
  Sender: FDA-Public Use
  Company Number: US-BAYER-201019593NA

PATIENT
  Age: 70 Year
  Sex: Male
  Weight: 54 kg

DRUGS (7)
  1. ULTRAVIST 300 [Suspect]
     Indication: COMPUTERISED TOMOGRAM ABDOMEN
     Dosage: TOTAL DAILY DOSE: 121 ML  UNIT DOSE: 200 ML
     Route: 042
     Dates: start: 20100409, end: 20100409
  2. READI -CAT [Concomitant]
     Route: 048
     Dates: start: 20100409, end: 20100409
  3. BARIUM [Concomitant]
     Dates: start: 20100409, end: 20100409
  4. FLOMAX [Concomitant]
  5. ASPIRIN [Concomitant]
  6. PROSCAR [Concomitant]
  7. NORVASC [Concomitant]

REACTIONS (1)
  - URTICARIA [None]
